FAERS Safety Report 6899755-6 (Version None)
Quarter: 2010Q3

REPORT INFORMATION
  Report Type: 
  Country: None (occurrence: None)
  Receive Date: 20100803
  Receipt Date: 20100727
  Transmission Date: 20110219
  Serious: Yes (Other)
  Sender: FDA-Public Use
  Company Number: NL-SANOFI-AVENTIS-2010SA043905

PATIENT
  Age: 75 Year
  Sex: Male

DRUGS (4)
  1. OXALIPLATIN [Suspect]
     Indication: GASTRIC CANCER
  2. CAPECITABINE [Suspect]
     Indication: GASTRIC CANCER
  3. EPIRUBICIN [Suspect]
     Indication: GASTRIC CANCER
  4. CISPLATIN [Suspect]
     Indication: GASTRIC CANCER

REACTIONS (3)
  - DIARRHOEA [None]
  - ELECTROLYTE IMBALANCE [None]
  - NEPHROPATHY TOXIC [None]
